FAERS Safety Report 13447920 (Version 1)
Quarter: 2017Q2

REPORT INFORMATION
  Report Type: Spontaneous
  Country: US (occurrence: US)
  Receive Date: 20170417
  Receipt Date: 20170417
  Transmission Date: 20170830
  Serious: No
  Sender: FDA-Public Use
  Company Number: US-009507513-1703USA009994

PATIENT
  Age: 28 Year
  Sex: Female
  Weight: 104.76 kg

DRUGS (3)
  1. NEXPLANON [Suspect]
     Active Substance: ETONOGESTREL
     Indication: CONTRACEPTION
     Dosage: 1 DF, EVERY 3 YEARS
     Route: 059
     Dates: start: 2013, end: 20161219
  2. NEXPLANON [Suspect]
     Active Substance: ETONOGESTREL
     Dosage: 1 DF, EVERY 3 YEARS
     Route: 059
     Dates: start: 20161219, end: 20161219
  3. NEXPLANON [Suspect]
     Active Substance: ETONOGESTREL
     Dosage: 1 DF, EVERY 3 YEARS
     Route: 059
     Dates: start: 20161219

REACTIONS (4)
  - Implant site scar [Recovering/Resolving]
  - Device expulsion [Recovered/Resolved]
  - Implant site fibrosis [Recovering/Resolving]
  - Complication of device insertion [Recovered/Resolved]

NARRATIVE: CASE EVENT DATE: 20161219
